FAERS Safety Report 9479692 (Version 1)
Quarter: 2013Q3

REPORT INFORMATION
  Report Type: Spontaneous
  Country: JP (occurrence: JP)
  Receive Date: 20130828
  Receipt Date: 20130828
  Transmission Date: 20140515
  Serious: Yes (Hospitalization, Other)
  Sender: FDA-Public Use
  Company Number: PHHY2013JP092455

PATIENT
  Sex: Female

DRUGS (1)
  1. DIOVAN [Suspect]
     Indication: HYPERTENSION

REACTIONS (7)
  - Limb deformity [Unknown]
  - Accident [Unknown]
  - Eyelid oedema [Unknown]
  - Arthropod bite [Unknown]
  - Eyelids pruritus [Unknown]
  - Scratch [Unknown]
  - Pruritus [Unknown]
